FAERS Safety Report 9999806 (Version 2)
Quarter: 2014Q1

REPORT INFORMATION
  Report Type: Spontaneous
  Country: BR (occurrence: BR)
  Receive Date: 20140312
  Receipt Date: 20140312
  Transmission Date: 20141002
  Serious: Yes (Other)
  Sender: FDA-Public Use
  Company Number: BR-PFIZER INC-2009230565

PATIENT
  Age: 66 Year
  Sex: Female
  Weight: 58.4 kg

DRUGS (13)
  1. CHAMPIX [Suspect]
     Indication: SMOKING CESSATION THERAPY
     Dosage: 1 DF, 1X/DAY
     Route: 048
     Dates: start: 200811, end: 200901
  2. RIVOTRIL [Concomitant]
     Dosage: UNK
     Dates: start: 2007
  3. VASTAREL [Concomitant]
     Dosage: UNK
     Dates: start: 2007
  4. CRESTOR [Concomitant]
     Dosage: UNK
     Dates: start: 2007
  5. OLMETEC [Concomitant]
     Dosage: UNK
     Dates: start: 2009
  6. CONCOR [Concomitant]
     Indication: ACUTE MYOCARDIAL INFARCTION
     Dosage: UNK
     Dates: start: 2007
  7. ALCYTAM [Concomitant]
     Indication: ACUTE MYOCARDIAL INFARCTION
     Dosage: UNK
     Dates: start: 2009
  8. SERETIDE [Concomitant]
     Indication: ACUTE MYOCARDIAL INFARCTION
     Dosage: UNK
     Dates: start: 2007
  9. SERETIDE [Concomitant]
     Indication: CHRONIC OBSTRUCTIVE PULMONARY DISEASE
     Dosage: UNK
     Dates: start: 2011
  10. SERETIDE [Concomitant]
     Indication: RESPIRATORY DISORDER
  11. SERETIDE [Concomitant]
     Indication: LUNG DISORDER
  12. ASPIRINA PREVENT [Concomitant]
     Indication: ACUTE MYOCARDIAL INFARCTION
     Dosage: UNK
     Dates: start: 2007
  13. CLOPIDOGREL BISULFATE [Concomitant]
     Indication: ACUTE MYOCARDIAL INFARCTION
     Dosage: UNK
     Dates: start: 2007

REACTIONS (3)
  - Cardiac disorder [Recovering/Resolving]
  - Malaise [Unknown]
  - Nausea [Unknown]
